FAERS Safety Report 10180289 (Version 1)
Quarter: 2014Q2

REPORT INFORMATION
  Report Type: Spontaneous
  Country: US (occurrence: US)
  Receive Date: 20140519
  Receipt Date: 20140519
  Transmission Date: 20141212
  Serious: No
  Sender: FDA-Public Use
  Company Number: US-AMGEN INC.-USASP2013080352

PATIENT
  Age: 76 Year
  Sex: Female

DRUGS (4)
  1. PROLIA [Suspect]
     Indication: OSTEOPOROSIS POSTMENOPAUSAL
     Dosage: UNK
     Route: 065
     Dates: start: 20131029
  2. MELOXICAM [Concomitant]
  3. FOLIC ACID [Concomitant]
  4. TOPROL [Concomitant]

REACTIONS (2)
  - Vomiting [Recovered/Resolved]
  - Nasopharyngitis [Unknown]
